FAERS Safety Report 16197363 (Version 1)
Quarter: 2019Q2

REPORT INFORMATION
  Report Type: Spontaneous
  Country: US (occurrence: US)
  Receive Date: 20190311
  Receipt Date: 20190311
  Transmission Date: 20190711
  Serious: No
  Sender: FDA-Public Use
  Company Number: None

PATIENT
  Age: 60 Year
  Sex: Male

DRUGS (2)
  1. REPATHA [Suspect]
     Active Substance: EVOLOCUMAB
     Indication: TYPE V HYPERLIPIDAEMIA
     Route: 058
     Dates: start: 201803
  2. REPATHA [Suspect]
     Active Substance: EVOLOCUMAB
     Indication: DERMATITIS CONTACT

REACTIONS (2)
  - Influenza like illness [None]
  - Abdominal pain [None]
